FAERS Safety Report 13539411 (Version 1)
Quarter: 2017Q2

REPORT INFORMATION
  Report Type: Spontaneous
  Country: US (occurrence: US)
  Receive Date: 20170512
  Receipt Date: 20170512
  Transmission Date: 20170830
  Serious: No
  Sender: FDA-Public Use
  Company Number: US-PFIZER INC-2017207147

PATIENT
  Age: 64 Year
  Sex: Female

DRUGS (1)
  1. SUTENT [Suspect]
     Active Substance: SUNITINIB MALATE
     Indication: NEOPLASM MALIGNANT
     Dosage: 50 MG (1 CAPSULE), CYCLIC (EVERY DAY, FOR 2 WEEKS THEN TAKE 1 WEEK BREAK)
     Route: 048
     Dates: start: 201704

REACTIONS (2)
  - Constipation [Recovering/Resolving]
  - Nausea [Unknown]
